FAERS Safety Report 15322048 (Version 1)
Quarter: 2018Q3

REPORT INFORMATION
  Report Type: Spontaneous
  Country: FR (occurrence: FR)
  Receive Date: 20180827
  Receipt Date: 20180827
  Transmission Date: 20181010
  Serious: Yes (Hospitalization, Other)
  Sender: FDA-Public Use
  Company Number: FR-PFIZER INC-2018337539

PATIENT
  Age: 23 Year
  Sex: Male

DRUGS (1)
  1. ZYVOXID [Suspect]
     Active Substance: LINEZOLID
     Indication: INFECTION
     Dosage: 1200 MG, 1X/DAY
     Dates: start: 20180619, end: 20180718

REACTIONS (4)
  - Neuropathy peripheral [Recovering/Resolving]
  - Lactic acidosis [Recovered/Resolved]
  - Mitochondrial cytopathy [Recovered/Resolved]
  - Cholestasis [Recovering/Resolving]

NARRATIVE: CASE EVENT DATE: 20180717
